FAERS Safety Report 17928442 (Version 4)
Quarter: 2021Q3

REPORT INFORMATION
  Report Type: Spontaneous
  Country: GB (occurrence: GB)
  Receive Date: 20200623
  Receipt Date: 20210922
  Transmission Date: 20211014
  Serious: Yes (Other)
  Sender: FDA-Public Use
  Company Number: GB-ROCHE-2613452

PATIENT
  Age: 80 Year
  Sex: Male

DRUGS (18)
  1. ROMIPLOSTIM [Suspect]
     Active Substance: ROMIPLOSTIM
     Indication: IMMUNE THROMBOCYTOPENIA
     Route: 065
  2. DEXAMETHASONE. [Concomitant]
     Active Substance: DEXAMETHASONE
     Indication: PRODUCT USED FOR UNKNOWN INDICATION
  3. MYCOPHENOLIC ACID. [Concomitant]
     Active Substance: MYCOPHENOLIC ACID
     Indication: IMMUNOSUPPRESSANT DRUG THERAPY
  4. REVOLADE [Suspect]
     Active Substance: ELTROMBOPAG OLAMINE
     Indication: IMMUNE THROMBOCYTOPENIA
     Route: 065
  5. ALENDRONIC ACID [Concomitant]
     Active Substance: ALENDRONIC ACID
     Indication: OSTEOPOROSIS
  6. RITUXIMAB. [Suspect]
     Active Substance: RITUXIMAB
     Indication: PRODUCT USED FOR UNKNOWN INDICATION
     Route: 065
     Dates: start: 20170202
  7. CAL D [Concomitant]
  8. FOLIC ACID. [Concomitant]
     Active Substance: FOLIC ACID
     Indication: COLD TYPE HAEMOLYTIC ANAEMIA
  9. PARACETAMOL [Concomitant]
     Active Substance: ACETAMINOPHEN
     Indication: MUSCULOSKELETAL DISCOMFORT
     Route: 065
  10. SPIRONOLACTONE. [Concomitant]
     Active Substance: SPIRONOLACTONE
     Indication: FLUID RETENTION
     Dosage: 1.25 MILLIGRAM, QD
  11. FOLIC ACID. [Concomitant]
     Active Substance: FOLIC ACID
     Indication: HAEMODIALYSIS
  12. FUROSEMIDE. [Concomitant]
     Active Substance: FUROSEMIDE
     Indication: FLUID RETENTION
  13. LATANOPROST. [Concomitant]
     Active Substance: LATANOPROST
     Indication: RETINAL VEIN OCCLUSION
     Dosage: 1/12,/1 DRP MILLILITER, QD
     Dates: start: 202107
  14. APIXABAN [Concomitant]
     Active Substance: APIXABAN
     Indication: COAGULOPATHY
     Route: 065
  15. LEVOTHYROXINE. [Concomitant]
     Active Substance: LEVOTHYROXINE
     Indication: HYPOTHYROIDISM
     Dosage: 75 MICROGRAM, QD
  16. COCODAMOL [Concomitant]
     Active Substance: ACETAMINOPHEN\CODEINE PHOSPHATE
     Indication: MUSCULOSKELETAL DISCOMFORT
  17. MYCOPHENOLATE MOFETIL. [Suspect]
     Active Substance: MYCOPHENOLATE MOFETIL
     Indication: IMMUNE THROMBOCYTOPENIA
     Route: 065
     Dates: start: 201803
  18. NPLATE [Suspect]
     Active Substance: ROMIPLOSTIM
     Indication: IMMUNE THROMBOCYTOPENIA
     Route: 065
     Dates: start: 201810

REACTIONS (8)
  - Internal haemorrhage [Unknown]
  - Platelet count decreased [Unknown]
  - Atrial fibrillation [Unknown]
  - Haemoglobin decreased [Unknown]
  - Cardiac failure [Unknown]
  - Pneumonia [Unknown]
  - Platelet disorder [Unknown]
  - Therapeutic response unexpected [Unknown]

NARRATIVE: CASE EVENT DATE: 201801
